FAERS Safety Report 14224867 (Version 1)
Quarter: 2017Q4

REPORT INFORMATION
  Report Type: Spontaneous
  Country: US (occurrence: US)
  Receive Date: 20171127
  Receipt Date: 20171127
  Transmission Date: 20180321
  Serious: No
  Sender: FDA-Public Use
  Company Number: US-TEVA-743196ACC

PATIENT
  Sex: Male

DRUGS (2)
  1. RABEPRAZOLE SODIUM DELAYED-RELEASE TABLETS [Suspect]
     Active Substance: RABEPRAZOLE SODIUM
     Indication: EROSIVE OESOPHAGITIS
  2. RABEPRAZOLE SODIUM DELAYED-RELEASE TABLETS [Suspect]
     Active Substance: RABEPRAZOLE SODIUM
     Indication: GASTROOESOPHAGEAL REFLUX DISEASE

REACTIONS (8)
  - Eye disorder [Unknown]
  - Thinking abnormal [Unknown]
  - Depression [Unknown]
  - Gastrooesophageal reflux disease [Unknown]
  - Angiopathy [Unknown]
  - Hypoaesthesia [Unknown]
  - Therapy cessation [Unknown]
  - Hypovitaminosis [Unknown]
